FAERS Safety Report 4674352-1 (Version None)
Quarter: 2005Q2

REPORT INFORMATION
  Report Type: 
  Country: None (occurrence: None)
  Receive Date: 20050526
  Receipt Date: 20050521
  Transmission Date: 20051028
  Serious: Yes (Other)
  Sender: FDA-Public Use
  Company Number: PHEH2005US05789

PATIENT
  Age: 70 Year
  Sex: Female

DRUGS (3)
  1. ZELNORM [Suspect]
     Indication: CONSTIPATION
     Dosage: 6 MG, BID
     Route: 048
     Dates: start: 20040101
  2. ZELNORM [Suspect]
     Dosage: 6 MG, QD
     Route: 048
  3. BEXTRA [Concomitant]
     Dosage: UNK, BID
     Dates: start: 20040101

REACTIONS (4)
  - CONSTIPATION [None]
  - DIARRHOEA [None]
  - DIZZINESS [None]
  - FREQUENT BOWEL MOVEMENTS [None]
